FAERS Safety Report 22648916 (Version 1)
Quarter: 2023Q2

REPORT INFORMATION
  Report Type: Spontaneous
  Country: PT (occurrence: PT)
  Receive Date: 20230628
  Receipt Date: 20230628
  Transmission Date: 20230722
  Serious: Yes (Other)
  Sender: FDA-Public Use
  Company Number: PT-JUVISE-2023000288

PATIENT
  Age: 62 Year
  Sex: Male

DRUGS (1)
  1. PYLERA [Suspect]
     Active Substance: BISMUTH SUBCITRATE POTASSIUM\METRONIDAZOLE\TETRACYCLINE HYDROCHLORIDE
     Indication: Helicobacter infection
     Dosage: 780 MILLIGRAM EVERY 8 UNK HOUR(S) 2 PILLS 3 TIMES A DAY
     Route: 048
     Dates: start: 20230614, end: 20230618

REACTIONS (7)
  - Dyspnoea [Not Recovered/Not Resolved]
  - Hypersensitivity [Not Recovered/Not Resolved]
  - Oedema genital [Not Recovered/Not Resolved]
  - Pruritus genital [Not Recovered/Not Resolved]
  - Faeces discoloured [Not Recovered/Not Resolved]
  - Urticaria [Not Recovered/Not Resolved]
  - Genital erythema [Not Recovered/Not Resolved]

NARRATIVE: CASE EVENT DATE: 20230616
